FAERS Safety Report 6610332-4 (Version None)
Quarter: 2010Q1

REPORT INFORMATION
  Report Type: 
  Country: None (occurrence: None)
  Receive Date: 20100302
  Receipt Date: 20100225
  Transmission Date: 20100710
  Serious: Yes (Hospitalization)
  Sender: FDA-Public Use
  Company Number: GXKR2010DE02231

PATIENT
  Age: 74 Year
  Sex: Female
  Weight: 75 kg

DRUGS (12)
  1. MIRTAZAPINE [Suspect]
     Indication: LEUKOENCEPHALOPATHY
     Dosage: UNK
     Route: 048
     Dates: start: 20091028, end: 20100105
  2. LARIAM                                  /AUT/ [Suspect]
     Indication: LEUKOENCEPHALOPATHY
     Dosage: 250 MG, QD
     Route: 048
     Dates: start: 20091028, end: 20091231
  3. PREDNISOLON [Concomitant]
  4. DIGITOXIN INJ [Concomitant]
  5. CALCILAC KT [Concomitant]
  6. SPIRONOLACTONE [Concomitant]
  7. KARVEA [Concomitant]
  8. ACTRAPID HUMAN [Concomitant]
  9. PANTOZOL [Interacting]
     Indication: REFLUX OESOPHAGITIS
     Dosage: 40 MG, BID
     Route: 048
     Dates: start: 20090601
  10. ACETYLSALICYLIC ACID SRT [Suspect]
     Indication: CORONARY ARTERY DISEASE
     Dosage: 100 MG, QD
     Route: 048
     Dates: start: 20090901
  11. TOREM [Interacting]
     Indication: RENAL FAILURE CHRONIC
     Dosage: 10 MG, QD
     Route: 048
     Dates: start: 20090601
  12. ISCOVER [Interacting]
     Indication: CORONARY ARTERY DISEASE
     Dosage: 75 MG, QD
     Route: 048
     Dates: start: 20090901

REACTIONS (1)
  - PANCYTOPENIA [None]
